FAERS Safety Report 16535519 (Version 12)
Quarter: 2020Q3

REPORT INFORMATION
  Report Type: Spontaneous
  Country: US (occurrence: US)
  Receive Date: 20190705
  Receipt Date: 20200918
  Transmission Date: 20201102
  Serious: No
  Sender: FDA-Public Use
  Company Number: US-PFIZER INC-2019282842

PATIENT
  Age: 67 Year
  Sex: Female
  Weight: 79.38 kg

DRUGS (7)
  1. SOMAVERT [Suspect]
     Active Substance: PEGVISOMANT
     Dosage: 10 MG , 3 DAYS A WEEK ( 3 TIMES A WEEK )
     Route: 058
  2. SOMAVERT [Suspect]
     Active Substance: PEGVISOMANT
     Dosage: 10 MG (INJECTION ONCE THREE TIMES A WEEK)
     Route: 058
  3. SOMAVERT [Suspect]
     Active Substance: PEGVISOMANT
     Dosage: 10 MG, 2X/WEEK
     Route: 058
     Dates: start: 201904
  4. SOMAVERT [Suspect]
     Active Substance: PEGVISOMANT
     Dosage: UNK, 2X/WEEK
     Route: 058
  5. SOMAVERT [Suspect]
     Active Substance: PEGVISOMANT
     Dosage: 10 MG, 4 TIMES A WEEK
  6. SOMAVERT [Suspect]
     Active Substance: PEGVISOMANT
     Indication: ACROMEGALY
     Dosage: 10 MG, DAILY
     Route: 058
  7. SOMAVERT [Suspect]
     Active Substance: PEGVISOMANT
     Dosage: UNK, ONCE DAILY
     Route: 058

REACTIONS (3)
  - Off label use [Unknown]
  - Insulin-like growth factor increased [Unknown]
  - Arthralgia [Unknown]

NARRATIVE: CASE EVENT DATE: 201904
